FAERS Safety Report 10366639 (Version 1)
Quarter: 2014Q3

REPORT INFORMATION
  Report Type: Spontaneous
  Country: DK (occurrence: FR)
  Receive Date: 20140806
  Receipt Date: 20140806
  Transmission Date: 20150326
  Serious: Yes (Life-Threatening, Hospitalization)
  Sender: FDA-Public Use
  Company Number: FR-FRI-1000069651

PATIENT
  Age: 40 Year
  Sex: Female
  Weight: 44 kg

DRUGS (7)
  1. ESCITALOPRAM [Suspect]
     Active Substance: ESCITALOPRAM OXALATE
     Route: 048
     Dates: start: 20140715, end: 20140715
  2. ZYPREXA [Suspect]
     Active Substance: OLANZAPINE
     Route: 048
     Dates: start: 20140715, end: 20140715
  3. TOPIRAMATE. [Suspect]
     Active Substance: TOPIRAMATE
     Route: 048
     Dates: start: 20140715, end: 20140715
  4. FLUOXETINE [Suspect]
     Active Substance: FLUOXETINE\FLUOXETINE HYDROCHLORIDE
     Route: 048
     Dates: start: 20140715, end: 20140715
  5. CLOMIPRAMINE [Suspect]
     Active Substance: CLOMIPRAMINE
     Route: 048
     Dates: start: 20140715, end: 20140715
  6. TERALITHE [Suspect]
     Active Substance: LITHIUM CARBONATE
     Dosage: OVERDOSE OF AN UNKNOWN DOSE ONCE
     Route: 048
     Dates: start: 20140715, end: 20140715
  7. ALPRAZOLAM. [Suspect]
     Active Substance: ALPRAZOLAM
     Route: 048
     Dates: start: 20140715, end: 20140715

REACTIONS (4)
  - Coma [Recovering/Resolving]
  - Anaemia [Not Recovered/Not Resolved]
  - Overdose [Not Recovered/Not Resolved]
  - Thrombocytopenia [Recovered/Resolved]

NARRATIVE: CASE EVENT DATE: 20140715
